FAERS Safety Report 7448975-0 (Version None)
Quarter: 2011Q2

REPORT INFORMATION
  Report Type: 
  Country: None (occurrence: None)
  Receive Date: 20110429
  Receipt Date: 20110425
  Transmission Date: 20111010
  Serious: Yes (Other)
  Sender: FDA-Public Use
  Company Number: US-MERCK-1104USA03337

PATIENT
  Sex: Female

DRUGS (1)
  1. HYZAAR [Suspect]
     Route: 048

REACTIONS (1)
  - RENAL ARTERY STENOSIS [None]
